FAERS Safety Report 24380228 (Version 1)
Quarter: 2024Q3

REPORT INFORMATION
  Report Type: Spontaneous
  Country: US (occurrence: US)
  Receive Date: 20240930
  Receipt Date: 20240930
  Transmission Date: 20241016
  Serious: No
  Sender: TAKEDA
  Company Number: US-TAKEDA-2024TUS094781

PATIENT
  Sex: Female

DRUGS (6)
  1. ENTYVIO [Suspect]
     Active Substance: VEDOLIZUMAB
     Indication: Crohn^s disease
     Dosage: UNK
     Route: 042
  2. ENTYVIO [Suspect]
     Active Substance: VEDOLIZUMAB
     Indication: Colitis ulcerative
  3. LIALDA [Suspect]
     Active Substance: MESALAMINE
     Indication: Colitis ulcerative
     Dosage: UNK
     Route: 065
  4. LIALDA [Suspect]
     Active Substance: MESALAMINE
     Indication: Crohn^s disease
  5. ZOLOFT [Concomitant]
     Active Substance: SERTRALINE HYDROCHLORIDE
     Dosage: UNK
  6. LITHIUM [Concomitant]
     Active Substance: LITHIUM
     Dosage: UNK

REACTIONS (10)
  - Depressed mood [Unknown]
  - Blood test abnormal [Unknown]
  - Contusion [Unknown]
  - Urinary tract infection [Unknown]
  - Peripheral swelling [Unknown]
  - Weight increased [Unknown]
  - Euphoric mood [Unknown]
  - Drug ineffective [Unknown]
  - Illness [Unknown]
  - Pain [Unknown]
